FAERS Safety Report 5874853-4 (Version None)
Quarter: 2008Q3

REPORT INFORMATION
  Report Type: 
  Country: None (occurrence: None)
  Receive Date: 20080904
  Receipt Date: 20080821
  Transmission Date: 20090109
  Serious: Yes (Hospitalization, Other)
  Sender: FDA-Public Use
  Company Number: UKP08000165

PATIENT
  Age: 33 Year
  Sex: Female
  Weight: 75 kg

DRUGS (9)
  1. ASACOL [Suspect]
     Indication: CROHN'S DISEASE
     Dosage: 800 MG, ORAL
     Route: 048
  2. REMICADE [Suspect]
     Indication: CROHN'S DISEASE
     Dosage: 370 MG, IV NOS
     Route: 042
     Dates: start: 20070515
  3. REMICADE [Suspect]
     Indication: CROHN'S DISEASE
     Dosage: 370 MG, IV NOS
     Route: 042
     Dates: start: 20070529
  4. REMICADE [Suspect]
     Indication: CROHN'S DISEASE
     Dosage: 370 MG, IV NOS
     Route: 042
     Dates: start: 20070710
  5. REMICADE [Suspect]
     Indication: CROHN'S DISEASE
     Dosage: 370 MG, IV NOS
     Route: 042
     Dates: start: 20070904
  6. REMICADE [Suspect]
     Indication: CROHN'S DISEASE
     Dosage: 370 MG, IV NOS
     Route: 042
     Dates: start: 20071030
  7. REMICADE [Suspect]
     Indication: CROHN'S DISEASE
     Dosage: 370 MG, IV NOS
     Route: 042
     Dates: start: 20071218
  8. REMICADE [Suspect]
     Indication: CROHN'S DISEASE
     Dosage: 370 MG, IV NOS
     Route: 042
     Dates: start: 20080212
  9. AZATHIOPRINE [Concomitant]

REACTIONS (2)
  - DEEP VEIN THROMBOSIS [None]
  - LUPUS-LIKE SYNDROME [None]
